FAERS Safety Report 13688287 (Version 1)
Quarter: 2017Q2

REPORT INFORMATION
  Report Type: Spontaneous
  Country: US (occurrence: US)
  Receive Date: 20170626
  Receipt Date: 20170626
  Transmission Date: 20170830
  Serious: No
  Sender: FDA-Public Use
  Company Number: US-TEVA-720096ACC

PATIENT
  Age: 76 Year
  Sex: Male
  Weight: 61 kg

DRUGS (1)
  1. LAMOTRIGINE TABLETS [Suspect]
     Active Substance: LAMOTRIGINE
     Dates: start: 201611, end: 20161203

REACTIONS (3)
  - Tremor [Not Recovered/Not Resolved]
  - Malaise [Unknown]
  - Nausea [Unknown]

NARRATIVE: CASE EVENT DATE: 20161130
